FAERS Safety Report 7524833-8 (Version None)
Quarter: 2011Q2

REPORT INFORMATION
  Report Type: 
  Country: None (occurrence: None)
  Receive Date: 20110606
  Receipt Date: 20101012
  Transmission Date: 20111010
  Serious: Yes (Hospitalization, Other)
  Sender: FDA-Public Use
  Company Number: US-BAYER-201024843NA

PATIENT
  Age: 34 Year
  Sex: Female

DRUGS (6)
  1. PYRIDOXINE HCL [Concomitant]
  2. YASMIN [Suspect]
     Route: 048
     Dates: start: 20080117, end: 20080701
  3. YASMIN [Suspect]
     Indication: PREMENSTRUAL SYNDROME
     Dosage: UNK UNK, QD
     Route: 048
     Dates: start: 20050629, end: 20070401
  4. DROSPIRENONE AND ETHINYL ESTRADIOL [Suspect]
     Indication: PREMENSTRUAL SYNDROME
     Dosage: UNK UNK, QD
     Route: 048
     Dates: start: 20080924, end: 20090819
  5. ISONIAZID [Concomitant]
  6. FAMOTIDINE [Concomitant]

REACTIONS (6)
  - PAIN [None]
  - ABDOMINAL PAIN [None]
  - EMOTIONAL DISTRESS [None]
  - GALLBLADDER DISORDER [None]
  - CHEST PAIN [None]
  - CHOLELITHIASIS [None]
